FAERS Safety Report 25577292 (Version 1)
Quarter: 2025Q3

REPORT INFORMATION
  Report Type: Spontaneous
  Country: EG (occurrence: EG)
  Receive Date: 20250718
  Receipt Date: 20250718
  Transmission Date: 20251021
  Serious: Yes (Other)
  Sender: HIKMA
  Company Number: EG-HIKMA PHARMACEUTICALS-EG-H14001-25-08549

PATIENT
  Age: 65 Year
  Sex: Female
  Weight: 44 kg

DRUGS (11)
  1. IRINOTECAN [Suspect]
     Active Substance: IRINOTECAN
     Indication: Colon cancer metastatic
     Route: 041
     Dates: start: 20250519
  2. IRINOTECAN [Suspect]
     Active Substance: IRINOTECAN
     Route: 041
     Dates: start: 20250611
  3. LEUCOVORIN CALCIUM [Suspect]
     Active Substance: LEUCOVORIN CALCIUM
     Indication: Colon cancer metastatic
     Route: 041
     Dates: start: 20250519
  4. LEUCOVORIN CALCIUM [Suspect]
     Active Substance: LEUCOVORIN CALCIUM
     Route: 041
     Dates: start: 20250611
  5. OXALIPLATIN [Suspect]
     Active Substance: OXALIPLATIN
     Indication: Colon cancer metastatic
     Route: 041
     Dates: start: 20250519
  6. OXALIPLATIN [Suspect]
     Active Substance: OXALIPLATIN
     Route: 041
     Dates: start: 20250611
  7. FLUOROURACIL [Suspect]
     Active Substance: FLUOROURACIL
     Indication: Colon cancer metastatic
     Route: 041
     Dates: start: 20250519
  8. FLUOROURACIL [Suspect]
     Active Substance: FLUOROURACIL
     Route: 041
     Dates: start: 20250611
  9. DEXAMETHASONE [Concomitant]
     Active Substance: DEXAMETHASONE
     Indication: Chemotherapy side effect prophylaxis
     Route: 065
  10. GRANITRYL [Concomitant]
     Indication: Chemotherapy side effect prophylaxis
     Route: 065
  11. PIRAFENE [Concomitant]
     Indication: Chemotherapy side effect prophylaxis
     Route: 065

REACTIONS (1)
  - Hypochromic anaemia [Not Recovered/Not Resolved]

NARRATIVE: CASE EVENT DATE: 20250628
